FAERS Safety Report 5952218-4 (Version None)
Quarter: 2008Q4

REPORT INFORMATION
  Report Type: 
  Country: None (occurrence: None)
  Receive Date: 20081113
  Receipt Date: 20081104
  Transmission Date: 20090506
  Serious: Yes (Hospitalization, Other)
  Sender: FDA-Public Use
  Company Number: US-ELI_LILLY_AND_COMPANY-US200809000687

PATIENT
  Sex: Male
  Weight: 130.16 kg

DRUGS (10)
  1. ZYPREXA [Suspect]
     Indication: SCHIZOAFFECTIVE DISORDER
     Dosage: 30 UNK, UNK
     Route: 048
     Dates: start: 20070101
  2. ZYPREXA ZYDIS [Suspect]
     Indication: SCHIZOAFFECTIVE DISORDER
     Dosage: 30 MG, DAILY (1/D)
  3. ZIAC [Concomitant]
  4. ASPIRIN [Concomitant]
  5. LITHIUM [Concomitant]
     Dosage: 450 UNK, 2/D
  6. COGENTIN [Concomitant]
     Dosage: 1 MG, 2/D
  7. ALLEGRA [Concomitant]
  8. GLUCOPHAGE [Concomitant]
  9. PROLIXIN                           /00000602/ [Concomitant]
     Dosage: 25 MG, OTHER
  10. ANTIHYPERTENSIVES [Concomitant]

REACTIONS (11)
  - BLOOD GLUCOSE INCREASED [None]
  - BLOOD PRESSURE INCREASED [None]
  - DERMATILLOMANIA [None]
  - DYSPNOEA [None]
  - FAT TISSUE INCREASED [None]
  - HEADACHE [None]
  - HIGH DENSITY LIPOPROTEIN DECREASED [None]
  - HOSPITALISATION [None]
  - INTERVERTEBRAL DISC DISORDER [None]
  - OVERDOSE [None]
  - WEIGHT INCREASED [None]
